FAERS Safety Report 25656285 (Version 2)
Quarter: 2025Q3

REPORT INFORMATION
  Report Type: Spontaneous
  Country: CN (occurrence: CN)
  Receive Date: 20250807
  Receipt Date: 20250814
  Transmission Date: 20251021
  Serious: Yes (Other)
  Sender: VERITY PHARMACEUTICALS INC.
  Company Number: CN-VER-202500023

PATIENT
  Age: 44 Year
  Sex: Female

DRUGS (2)
  1. TRIPTORELIN [Suspect]
     Active Substance: TRIPTORELIN
     Indication: Ovulation induction
     Route: 065
     Dates: start: 20240102
  2. CHORIOGONADOTROPIN ALFA [Suspect]
     Active Substance: CHORIOGONADOTROPIN ALFA
     Indication: Ovulation induction
     Route: 065
     Dates: start: 20240112

REACTIONS (2)
  - Abortion spontaneous [Unknown]
  - Off label use [Unknown]

NARRATIVE: CASE EVENT DATE: 20240102
